FAERS Safety Report 6842676-5 (Version None)
Quarter: 2010Q3

REPORT INFORMATION
  Report Type: 
  Country: None (occurrence: None)
  Receive Date: 20100714
  Receipt Date: 20070803
  Transmission Date: 20110219
  Serious: Yes (Other)
  Sender: FDA-Public Use
  Company Number: US-PFIZER INC-2007065566

PATIENT
  Sex: Male

DRUGS (3)
  1. CHANTIX [Suspect]
     Dates: start: 20070701
  2. PLAVIX [Concomitant]
  3. WARFARIN SODIUM [Concomitant]

REACTIONS (3)
  - CHEST PAIN [None]
  - FATIGUE [None]
  - SOMNOLENCE [None]
